FAERS Safety Report 5485514-8 (Version None)
Quarter: 2007Q4

REPORT INFORMATION
  Report Type: 
  Country: None (occurrence: None)
  Receive Date: 20071010
  Receipt Date: 20071010
  Transmission Date: 20080405
  Serious: Yes (Life-Threatening)
  Sender: FDA-Public Use
  Company Number: None

PATIENT
  Age: 79 Year
  Sex: Female

DRUGS (8)
  1. METOPROLOL TARTRATE [Suspect]
     Indication: HYPERTENSION
     Dosage: 25MG TID PO
     Route: 048
  2. COREG [Suspect]
     Indication: HYPERTENSION
     Dosage: 12.5MG BID PO
     Route: 048
  3. RANITIDINE HCL [Concomitant]
  4. GLIPIZIDE [Concomitant]
  5. NORVASC [Concomitant]
  6. IRON SULFATE (FESO4) [Concomitant]
  7. LASIX [Concomitant]
  8. PRAVASTATIN [Concomitant]

REACTIONS (3)
  - ATRIOVENTRICULAR BLOCK [None]
  - BRADYCARDIA [None]
  - HYPERKALAEMIA [None]
